FAERS Safety Report 6898233-8 (Version None)
Quarter: 2010Q3

REPORT INFORMATION
  Report Type: 
  Country: None (occurrence: None)
  Receive Date: 20100802
  Receipt Date: 20070924
  Transmission Date: 20110219
  Serious: No
  Sender: FDA-Public Use
  Company Number: US-PFIZER INC-2007070321

PATIENT
  Age: 49 Year
  Sex: Female

DRUGS (4)
  1. LYRICA [Suspect]
     Indication: NEUROPATHY PERIPHERAL
     Route: 048
     Dates: start: 20050622, end: 20070807
  2. LYRICA [Suspect]
     Indication: PAIN IN EXTREMITY
  3. ULTRAM [Concomitant]
     Route: 048
  4. NEURONTIN [Concomitant]

REACTIONS (1)
  - VISION BLURRED [None]
